FAERS Safety Report 5698105-0 (Version None)
Quarter: 2008Q2

REPORT INFORMATION
  Report Type: 
  Country: None (occurrence: None)
  Receive Date: 20080408
  Receipt Date: 20080213
  Transmission Date: 20081010
  Serious: Yes (Hospitalization, Other)
  Sender: FDA-Public Use
  Company Number: US-PURDUE-USA_2008_0032078

PATIENT
  Sex: Female

DRUGS (2)
  1. OXYCONTIN [Suspect]
     Indication: PAIN
     Dosage: 80 MG, UNK
     Route: 048
     Dates: start: 19990101, end: 20010101
  2. OXYCONTIN [Suspect]
     Dosage: 240 MG, DAILY
     Route: 048
     Dates: end: 20010101

REACTIONS (15)
  - AMNESIA [None]
  - ANOREXIA [None]
  - DECREASED ACTIVITY [None]
  - DEPRESSION [None]
  - DRUG DEPENDENCE [None]
  - DRUG WITHDRAWAL SYNDROME [None]
  - DUODENAL PERFORATION [None]
  - HOSPITALISATION [None]
  - INADEQUATE ANALGESIA [None]
  - INSOMNIA [None]
  - MANIA [None]
  - MOOD SWINGS [None]
  - PAIN [None]
  - SUBSTANCE ABUSE [None]
  - SUICIDAL IDEATION [None]
